FAERS Safety Report 10922207 (Version 2)
Quarter: 2015Q1

REPORT INFORMATION
  Report Type: Report from Study
  Country: US (occurrence: US)
  Receive Date: 20150317
  Receipt Date: 20150317
  Transmission Date: 20150721
  Serious: No
  Sender: FDA-Public Use
  Company Number: US-ABBVIE-14P-163-1320936-00

PATIENT
  Age: 29 Year
  Sex: Female

DRUGS (3)
  1. LUPANETA PACK [Suspect]
     Active Substance: ISOPROPYL ALCOHOL\LEUPROLIDE ACETATE\NORETHINDRONE ACETATE
     Indication: ENDOMETRIOSIS
     Route: 030
     Dates: start: 20141017
  2. LUPANETA PACK [Suspect]
     Active Substance: ISOPROPYL ALCOHOL\LEUPROLIDE ACETATE\NORETHINDRONE ACETATE
     Indication: ENDOMETRIOSIS
     Route: 048
     Dates: start: 20141017, end: 201411
  3. TRI-SPRINTEC [Concomitant]
     Active Substance: ETHINYL ESTRADIOL\NORGESTIMATE
     Indication: PRODUCT USED FOR UNKNOWN INDICATION
     Dates: end: 2014

REACTIONS (8)
  - Nausea [Recovered/Resolved]
  - Hot flush [Not Recovered/Not Resolved]
  - Dysstasia [Recovered/Resolved]
  - Abdominal pain lower [Recovered/Resolved]
  - Metrorrhagia [Recovered/Resolved]
  - Anxiety [Not Recovered/Not Resolved]
  - Dizziness [Recovered/Resolved]
  - Depression [Not Recovered/Not Resolved]

NARRATIVE: CASE EVENT DATE: 201410
